FAERS Safety Report 9825322 (Version 1)
Quarter: 2013Q4

REPORT INFORMATION
  Report Type: Spontaneous
  Country: US (occurrence: None)
  Receive Date: 20131028
  Receipt Date: 20131028
  Transmission Date: 20140711
  Serious: Yes (Other)
  Sender: FDA-Public Use
  Company Number: 2013US002031

PATIENT
  Age: 83 Year
  Sex: Female
  Weight: 86 kg

DRUGS (1)
  1. ICLUSIG (PONATINIB) TABLET, 45MG [Suspect]
     Indication: CHRONIC MYELOID LEUKAEMIA
     Route: 048
     Dates: start: 20130420, end: 20130708

REACTIONS (3)
  - Confusional state [None]
  - Blood glucose increased [None]
  - Urinary tract infection [None]
